FAERS Safety Report 21768212 (Version 2)
Quarter: 2022Q4

REPORT INFORMATION
  Report Type: Spontaneous
  Country: IL (occurrence: IL)
  Receive Date: 20221222
  Receipt Date: 20221230
  Transmission Date: 20230112
  Serious: Yes (Hospitalization, Other)
  Sender: FDA-Public Use
  Company Number: IL-TEVA-2022-IL-2838350

PATIENT
  Age: 67 Year
  Sex: Male

DRUGS (7)
  1. METHOTREXATE [Interacting]
     Active Substance: METHOTREXATE
     Indication: Diffuse large B-cell lymphoma
     Dosage: HIGH DOSE, RECEIVING THIRD COURSE , 16 H , HD-MTX (2.25-3.5 G/M2 AS INTRAVENOUS INFUSION DURING 2-3
     Route: 041
  2. METHOTREXATE [Interacting]
     Active Substance: METHOTREXATE
     Dosage: REDUCED DOSES (2.0 AND THEN 2.5 G/M2 , CORRESPONDING TO A 43% AND 29% DOSE REDUCTION
     Route: 042
  3. METHOTREXATE [Interacting]
     Active Substance: METHOTREXATE
     Dosage: DAILY DOSE : X 3.5 GRAM PER SQUARE METRE IN , DURING 3 H
     Route: 042
  4. METHOTREXATE [Interacting]
     Active Substance: METHOTREXATE
     Dosage: 6.9 MILLIGRAM DAILY;
     Route: 042
  5. FUROSEMIDE [Interacting]
     Active Substance: FUROSEMIDE
     Indication: Product used for unknown indication
     Route: 065
  6. CIPROFLOXACIN [Interacting]
     Active Substance: CIPROFLOXACIN
     Indication: Product used for unknown indication
     Route: 065
  7. OMEPRAZOLE [Interacting]
     Active Substance: OMEPRAZOLE
     Indication: Product used for unknown indication
     Route: 065

REACTIONS (4)
  - Acute kidney injury [Recovered/Resolved]
  - Thrombocytopenia [Unknown]
  - Drug clearance decreased [Recovered/Resolved]
  - Drug interaction [Unknown]

NARRATIVE: CASE EVENT DATE: 20200101
